FAERS Safety Report 6132067-7 (Version None)
Quarter: 2009Q1

REPORT INFORMATION
  Report Type: 
  Country: None (occurrence: None)
  Receive Date: 20090325
  Receipt Date: 20090318
  Transmission Date: 20090719
  Serious: Yes (Life-Threatening)
  Sender: FDA-Public Use
  Company Number: DE-ROCHE-614731

PATIENT
  Sex: Female
  Weight: 22 kg

DRUGS (5)
  1. FLUMAZENIL [Suspect]
     Indication: ANAESTHESIA REVERSAL
     Route: 042
     Dates: start: 20090213, end: 20090213
  2. DORMICUM [Concomitant]
     Indication: PREMEDICATION
  3. KETANEST [Concomitant]
     Indication: PREMEDICATION
  4. PROPOFOL [Concomitant]
     Indication: ANAESTHESIA
  5. REMIFENTANIL [Concomitant]
     Indication: ANAESTHESIA

REACTIONS (1)
  - RESPIRATORY ARREST [None]
